FAERS Safety Report 13960630 (Version 1)
Quarter: 2017Q3

REPORT INFORMATION
  Report Type: Spontaneous
  Country: US (occurrence: US)
  Receive Date: 20170912
  Receipt Date: 20170912
  Transmission Date: 20171128
  Serious: No
  Sender: FDA-Public Use
  Company Number: US-ELI_LILLY_AND_COMPANY-US201708011447

PATIENT
  Sex: Male

DRUGS (2)
  1. CIALIS [Suspect]
     Active Substance: TADALAFIL
     Indication: PRODUCT USED FOR UNKNOWN INDICATION
     Dosage: 10 MG, UNKNOWN
     Route: 065
     Dates: start: 2017
  2. CIALIS [Suspect]
     Active Substance: TADALAFIL
     Dosage: 5 MG, UNKNOWN
     Route: 065

REACTIONS (2)
  - Erectile dysfunction [Unknown]
  - Blood glucose increased [Unknown]
